FAERS Safety Report 5929642-9 (Version None)
Quarter: 2008Q3

REPORT INFORMATION
  Report Type: 
  Country: None (occurrence: None)
  Receive Date: 20080922
  Receipt Date: 20080407
  Transmission Date: 20090109
  Serious: No
  Sender: FDA-Public Use
  Company Number: T200800635

PATIENT

DRUGS (1)
  1. HYDROCODONE BITARTRATE + ACETAMINOPHEN [Suspect]
     Indication: PROCEDURAL PAIN
     Dosage: PM
     Dates: start: 20080101

REACTIONS (4)
  - CHEST DISCOMFORT [None]
  - HYPERSENSITIVITY [None]
  - NERVOUSNESS [None]
  - TREMOR [None]
